FAERS Safety Report 5078362-4 (Version None)
Quarter: 2006Q3

REPORT INFORMATION
  Report Type: 
  Country: None (occurrence: None)
  Receive Date: 20060811
  Receipt Date: 20030616
  Transmission Date: 20061208
  Serious: Yes (Hospitalization, Disabling)
  Sender: FDA-Public Use
  Company Number: FR-GLAXOSMITHKLINE-B0302362A

PATIENT
  Age: 34 Year
  Sex: Male

DRUGS (2)
  1. IMIJECT [Suspect]
     Indication: CLUSTER HEADACHE
     Dosage: 6MG AS REQUIRED
     Route: 058
     Dates: start: 20030425, end: 20030503
  2. VERAPAMIL [Suspect]
     Indication: ANGIOPATHY
     Dosage: 240MG AS REQUIRED
     Route: 048
     Dates: start: 20030425, end: 20030503

REACTIONS (4)
  - CEREBRAL INFARCTION [None]
  - GAIT DISTURBANCE [None]
  - HEMIPLEGIA [None]
  - INJECTION SITE HAEMORRHAGE [None]
